FAERS Safety Report 8083518 (Version 3)
Quarter: 2013Q1

REPORT INFORMATION
  Report Type: Spontaneous
  Country: US (occurrence: None)
  Receive Date: 20110729
  Receipt Date: 20130116
  Transmission Date: 20140127
  Serious: Yes (Hospitalization, Other)
  Sender: FDA-Public Use
  Company Number: 2011AP001531

PATIENT
  Age: 64 Year
  Sex: Female

DRUGS (2)
  1. LITHIUM CARBONATE [Suspect]
     Indication: BIPOLAR DISORDER
     Dosage: 600 MG;HS
  2. SERTRALINE HYDROCHLORIDE [Concomitant]

REACTIONS (6)
  - Atrioventricular block second degree [None]
  - Dyspnoea exertional [None]
  - Chest discomfort [None]
  - Sinus bradycardia [None]
  - Bundle branch block right [None]
  - Myocardial ischaemia [None]
